FAERS Safety Report 20720135 (Version 1)
Quarter: 2022Q2

REPORT INFORMATION
  Report Type: Spontaneous
  Country: US (occurrence: US)
  Receive Date: 20220418
  Receipt Date: 20220418
  Transmission Date: 20220721
  Serious: Yes (Other)
  Sender: FDA-Public Use
  Company Number: US-PFIZER INC-202200531215

PATIENT
  Age: 69 Year
  Sex: Male
  Weight: 79.38 kg

DRUGS (3)
  1. AMINOPHYLLINE [Suspect]
     Active Substance: AMINOPHYLLINE
     Indication: Heart rate decreased
     Dosage: UNK (125MG INFUSION)
     Dates: start: 20220225, end: 20220225
  2. AMINOPHYLLINE [Suspect]
     Active Substance: AMINOPHYLLINE
     Indication: Nausea
  3. LEXISCAN [Suspect]
     Active Substance: REGADENOSON
     Indication: Heart rate decreased
     Dosage: UNK
     Dates: start: 20220225, end: 20220225

REACTIONS (2)
  - Loss of consciousness [Unknown]
  - Off label use [Unknown]

NARRATIVE: CASE EVENT DATE: 20220225
